FAERS Safety Report 5219059-7 (Version None)
Quarter: 2007Q1

REPORT INFORMATION
  Report Type: 
  Country: None (occurrence: None)
  Receive Date: 20070125
  Receipt Date: 20070119
  Transmission Date: 20070707
  Serious: Yes (Hospitalization)
  Sender: FDA-Public Use
  Company Number: US-ELI_LILLY_AND_COMPANY-US200701003813

PATIENT
  Age: 5 Year
  Sex: Male

DRUGS (1)
  1. HUMATROPE [Suspect]
     Indication: DWARFISM
     Dosage: UNK, UNK
     Dates: start: 20050501

REACTIONS (5)
  - FEAR [None]
  - GAIT DISTURBANCE [None]
  - INJURY [None]
  - MYOSITIS [None]
  - PYREXIA [None]
